FAERS Safety Report 14186918 (Version 1)
Quarter: 2017Q4

REPORT INFORMATION
  Report Type: Spontaneous
  Country: US (occurrence: US)
  Receive Date: 20171113
  Receipt Date: 20171113
  Transmission Date: 20180321
  Serious: Yes (Disabling)
  Sender: FDA-Public Use
  Company Number: None

PATIENT
  Age: 55 Year
  Sex: Female
  Weight: 103.5 kg

DRUGS (8)
  1. FUROSEMIDE. [Concomitant]
     Active Substance: FUROSEMIDE
  2. GABAPENTIN. [Concomitant]
     Active Substance: GABAPENTIN
  3. POTASSIUM [Concomitant]
     Active Substance: POTASSIUM
  4. MELOXICAM. [Concomitant]
     Active Substance: MELOXICAM
  5. CIPROFLOXACIN. [Suspect]
     Active Substance: CIPROFLOXACIN
     Indication: Q FEVER
     Dates: start: 20130101, end: 20170615
  6. LISINOPRIL. [Concomitant]
     Active Substance: LISINOPRIL
  7. ADVIL [Concomitant]
     Active Substance: IBUPROFEN
  8. ZYRTEC [Concomitant]
     Active Substance: CETIRIZINE HYDROCHLORIDE

REACTIONS (4)
  - Dysstasia [None]
  - Gait inability [None]
  - Tendon disorder [None]
  - Nervous system disorder [None]

NARRATIVE: CASE EVENT DATE: 20140101
